FAERS Safety Report 12368917 (Version 1)
Quarter: 2016Q2

REPORT INFORMATION
  Report Type: Spontaneous
  Country: US (occurrence: US)
  Receive Date: 20160513
  Receipt Date: 20160513
  Transmission Date: 20160815
  Serious: Yes (Other)
  Sender: FDA-Public Use
  Company Number: US-SA-2016SA092210

PATIENT
  Sex: Female

DRUGS (2)
  1. ASPERCREME NOS [Concomitant]
     Active Substance: MENTHOL\TROLAMINE SALICYLATE
  2. ICY HOT MEDICATED, BACK [Suspect]
     Active Substance: MENTHOL
     Dosage: DOSAGE: FORM: PATCH
     Route: 065

REACTIONS (2)
  - Respiratory distress [Unknown]
  - Speech disorder [Unknown]
